FAERS Safety Report 24683003 (Version 3)
Quarter: 2025Q1

REPORT INFORMATION
  Report Type: Spontaneous
  Country: US (occurrence: US)
  Receive Date: 20241201
  Receipt Date: 20250301
  Transmission Date: 20250408
  Serious: No
  Sender: SANOFI AVENTIS
  Company Number: US-SA-2024SA345236

PATIENT
  Age: 63 Year
  Sex: Female

DRUGS (2)
  1. DUPIXENT [Suspect]
     Active Substance: DUPILUMAB
     Indication: Dermatitis atopic
     Route: 058
     Dates: start: 20241118, end: 20241118
  2. DUPIXENT [Suspect]
     Active Substance: DUPILUMAB
     Dosage: 300 MG, QOW
     Route: 058
     Dates: start: 202501

REACTIONS (15)
  - Sensitive skin [Not Recovered/Not Resolved]
  - Tenderness [Not Recovered/Not Resolved]
  - Gait disturbance [Not Recovered/Not Resolved]
  - Mastocytosis [Unknown]
  - Feeling hot [Not Recovered/Not Resolved]
  - Skin discolouration [Unknown]
  - Condition aggravated [Unknown]
  - Swelling [Unknown]
  - Condition aggravated [Unknown]
  - Sleep disorder due to a general medical condition [Unknown]
  - Pruritus [Not Recovered/Not Resolved]
  - Erythema [Unknown]
  - Condition aggravated [Unknown]
  - Accidental exposure to product [Unknown]
  - Exposure via skin contact [Unknown]

NARRATIVE: CASE EVENT DATE: 20241118
